FAERS Safety Report 8115297-4 (Version None)
Quarter: 2012Q1

REPORT INFORMATION
  Report Type: 
  Country: None (occurrence: None)
  Receive Date: 20120201
  Receipt Date: 20120123
  Transmission Date: 20120608
  Serious: Yes (Hospitalization, Other)
  Sender: FDA-Public Use
  Company Number: AUR-APL-2012-00651

PATIENT
  Age: 48 Year
  Sex: Male

DRUGS (3)
  1. PIOGLITAZONE [Concomitant]
  2. SIMVASTATIN [Suspect]
     Indication: PRODUCT USED FOR UNKNOWN INDICATION
     Dosage: (80 MG, 1 D),
  3. METFORMIN HCL [Suspect]
     Indication: PRODUCT USED FOR UNKNOWN INDICATION
     Dosage: 1000 MG (500 MG, 2 IN 1 D),

REACTIONS (9)
  - FATIGUE [None]
  - PLATELET COUNT DECREASED [None]
  - HEPATOSPLENOMEGALY [None]
  - ABDOMINAL PAIN UPPER [None]
  - JAUNDICE [None]
  - HEPATIC STEATOSIS [None]
  - MALAISE [None]
  - CONFUSIONAL STATE [None]
  - HEPATOTOXICITY [None]
